FAERS Safety Report 9173856 (Version 1)
Quarter: 2013Q1

REPORT INFORMATION
  Report Type: Spontaneous
  Country: DE (occurrence: DE)
  Receive Date: 20130320
  Receipt Date: 20130320
  Transmission Date: 20140127
  Serious: Yes (Other)
  Sender: FDA-Public Use
  Company Number: DE-BRISTOL-MYERS SQUIBB COMPANY-17467911

PATIENT
  Age: 31 Year
  Sex: Female
  Weight: 52 kg

DRUGS (5)
  1. SPRYCEL [Suspect]
     Indication: CHRONIC MYELOID LEUKAEMIA
     Dosage: ALSO TOOK 50MG, 100MG/DAY
  2. HYDROXYUREA [Suspect]
  3. IBUPROFEN [Suspect]
  4. HYDROCHLOROTHIAZIDE [Suspect]
  5. TRIAMTERENE [Suspect]

REACTIONS (5)
  - Asthenia [Unknown]
  - Thrombocytopenia [Unknown]
  - Pain in extremity [Recovering/Resolving]
  - Tension [Unknown]
  - Oedema [Recovering/Resolving]
